FAERS Safety Report 8482717-5 (Version None)
Quarter: 2012Q3

REPORT INFORMATION
  Report Type: 
  Country: None (occurrence: None)
  Receive Date: 20120702
  Receipt Date: 20120622
  Transmission Date: 20120928
  Serious: Yes (Hospitalization)
  Sender: FDA-Public Use
  Company Number: US-BRISTOL-MYERS SQUIBB COMPANY-16176638

PATIENT
  Age: 65 Year
  Sex: Male
  Weight: 62 kg

DRUGS (15)
  1. CARBOPLATIN [Suspect]
     Indication: HEAD AND NECK CANCER
     Dosage: 1DF:AUC 5,DAY 1,LAST DOSE:24AUG2011.INTERRUPTED:28SEP2011.15AUG2011 FULL DOSE ADMINISTERED.
     Route: 042
     Dates: start: 20110802
  2. PROMETHAZINE [Concomitant]
     Indication: NAUSEA
     Dates: start: 20110811
  3. SENNOSIDE [Concomitant]
     Indication: CONSTIPATION
     Dates: start: 20110623
  4. PROCHLORPERAZINE MALEATE [Concomitant]
     Indication: NAUSEA
     Dates: start: 20110802
  5. ERBITUX [Suspect]
     Indication: HEAD AND NECK CANCER
     Dosage: 5AUC DAY,02AUG11-UNK,12AUG11-UK,LST DSE:7SEP11 OF BLIND STUDYDRUG,RECENT DSE:12SEP11,21SEP-INTERP
     Route: 042
  6. NYSTATIN [Concomitant]
     Indication: FUNGAL INFECTION
     Dates: start: 20101206
  7. CLINDAMYCIN PHOSPHATE [Concomitant]
     Indication: RASH
     Dates: start: 20110802
  8. FLUOROURACIL [Suspect]
     Indication: HEAD AND NECK CANCER
     Dosage: LAST DOSE:24AUG2011.INTERRUPTED:28SEP2011.
     Route: 042
     Dates: start: 20110802
  9. HYDROCODONE BITARTRATE + ACETAMINOPHEN [Concomitant]
     Indication: PAIN
     Dates: start: 20110718
  10. PROCHLORPERAZINE MALEATE [Concomitant]
     Indication: VOMITING
     Dates: start: 20110802
  11. PROMETHAZINE [Concomitant]
     Indication: PROPHYLAXIS
     Dates: start: 20110811
  12. ENSURE [Concomitant]
  13. ONDANSETRON HCL [Concomitant]
     Dosage: TAB
     Dates: start: 20100917
  14. MEGESTROL ACETATE [Concomitant]
     Indication: DECREASED APPETITE
     Dates: start: 20101206
  15. PROMETHAZINE [Concomitant]
     Indication: VOMITING
     Dates: start: 20110811

REACTIONS (4)
  - HAEMOGLOBIN DECREASED [None]
  - DIARRHOEA [None]
  - VOMITING [None]
  - NAUSEA [None]
